FAERS Safety Report 11146445 (Version 4)
Quarter: 2015Q3

REPORT INFORMATION
  Report Type: Spontaneous
  Country: IT (occurrence: None)
  Receive Date: 20150526
  Receipt Date: 20150716
  Transmission Date: 20151125
  Serious: Yes (Other)
  Sender: FDA-Public Use
  Company Number: 2015SGN00836

PATIENT
  Age: 19 Year
  Sex: Male
  Weight: 78 kg

DRUGS (1)
  1. BRENTUXIMAB VEDOTIN [Suspect]
     Active Substance: BRENTUXIMAB VEDOTIN
     Indication: HODGKIN^S DISEASE
     Route: 042
     Dates: start: 20140227, end: 20150209

REACTIONS (2)
  - Cardiac failure [None]
  - Paraesthesia [None]

NARRATIVE: CASE EVENT DATE: 20140623
